FAERS Safety Report 5800063-2 (Version None)
Quarter: 2008Q3

REPORT INFORMATION
  Report Type: 
  Country: None (occurrence: None)
  Receive Date: 20080703
  Receipt Date: 20080618
  Transmission Date: 20090109
  Serious: Yes (Hospitalization)
  Sender: FDA-Public Use
  Company Number: PHHO2008US06493

PATIENT
  Sex: Male
  Weight: 91.8 kg

DRUGS (6)
  1. RAD 666 RAD+TAB [Suspect]
     Indication: CARCINOID TUMOUR
     Dosage: 10 MG, QD
     Dates: start: 20080416, end: 20080515
  2. SANDOSTATIN LAR [Suspect]
     Indication: CARCINOID TUMOUR
     Dosage: 30 MG Q28DAYS
     Dates: start: 20080416, end: 20080515
  3. COUMADIN [Concomitant]
  4. RYTHMOL [Concomitant]
  5. SINGULAIR [Concomitant]
  6. TOPROL-XL [Concomitant]

REACTIONS (6)
  - CONFUSIONAL STATE [None]
  - CYTOKINE RELEASE SYNDROME [None]
  - MUSCULAR WEAKNESS [None]
  - PYREXIA [None]
  - SKIN EXFOLIATION [None]
  - SKIN REACTION [None]
